FAERS Safety Report 24942192 (Version 1)
Quarter: 2025Q1

REPORT INFORMATION
  Report Type: Spontaneous
  Country: RU (occurrence: RU)
  Receive Date: 20250207
  Receipt Date: 20250207
  Transmission Date: 20250409
  Serious: Yes (Life-Threatening)
  Sender: EMD SERONO INC
  Company Number: RU-Merck Healthcare KGaA-2025006104

PATIENT
  Age: 76 Year
  Sex: Female
  Weight: 100 kg

DRUGS (2)
  1. METFORMIN HYDROCHLORIDE [Suspect]
     Active Substance: METFORMIN HYDROCHLORIDE
     Indication: Type 2 diabetes mellitus
     Dates: start: 20250126, end: 20250128
  2. GLICLAZIDE [Concomitant]
     Active Substance: GLICLAZIDE
     Indication: Type 2 diabetes mellitus
     Dosage: FOR MANY YEARS, SHE HAS BEEN TAKING GLICLAZIDE 30 MG ONCE A DAY. CONTINUES TO TAKE IT AT PRESENT

REACTIONS (1)
  - Hypoglycaemia [Recovered/Resolved]

NARRATIVE: CASE EVENT DATE: 20250127
